FAERS Safety Report 10337110 (Version 1)
Quarter: 2014Q3

REPORT INFORMATION
  Report Type: Spontaneous
  Country: US (occurrence: US)
  Receive Date: 20140723
  Receipt Date: 20140723
  Transmission Date: 20150326
  Serious: No
  Sender: FDA-Public Use
  Company Number: US-GILEAD-2014-0109818

PATIENT

DRUGS (4)
  1. LETAIRIS [Suspect]
     Active Substance: AMBRISENTAN
     Indication: PULMONARY EMBOLISM
     Dosage: 5 MG, QD
     Route: 065
     Dates: start: 20140420
  2. ADCIRCA [Concomitant]
     Active Substance: TADALAFIL
  3. VELETRI [Concomitant]
     Active Substance: EPOPROSTENOL
  4. COUMADIN [Concomitant]
     Active Substance: WARFARIN SODIUM

REACTIONS (1)
  - Peripheral swelling [Unknown]
